FAERS Safety Report 15494147 (Version 1)
Quarter: 2018Q4

REPORT INFORMATION
  Report Type: Spontaneous
  Country: PH (occurrence: PH)
  Receive Date: 20181012
  Receipt Date: 20181012
  Transmission Date: 20190205
  Serious: Yes (Life-Threatening, Hospitalization)
  Sender: FDA-Public Use
  Company Number: PH-MYLANLABS-2018M1007865

PATIENT
  Age: 31 Year
  Sex: Male

DRUGS (9)
  1. ROCURONIUM [Suspect]
     Active Substance: ROCURONIUM BROMIDE
     Indication: TETANUS
     Dosage: 10MCG/KG/MIN
     Route: 050
  2. PROPOFOL. [Suspect]
     Active Substance: PROPOFOL
     Indication: MUSCLE SPASMS
     Dosage: 50 MG/KG, UNK
     Route: 050
  3. CIPROFLOXACIN. [Concomitant]
     Active Substance: CIPROFLOXACIN
     Indication: WOUND INFECTION
     Dosage: 400 MG, UNK
     Route: 042
  4. ROCURONIUM [Suspect]
     Active Substance: ROCURONIUM BROMIDE
     Indication: MUSCLE SPASMS
  5. DIAZEPAM. [Suspect]
     Active Substance: DIAZEPAM
     Indication: MUSCLE SPASMS
  6. MIDAZOLAM [Suspect]
     Active Substance: MIDAZOLAM HYDROCHLORIDE
     Indication: MUSCLE SPASMS
  7. DIAZEPAM. [Suspect]
     Active Substance: DIAZEPAM
     Indication: TETANUS
     Dosage: FOLLOWED BY INCREASE TO A MAXIMUM DOSE OF 40 MG/DAY
     Route: 065
  8. MIDAZOLAM [Suspect]
     Active Substance: MIDAZOLAM HYDROCHLORIDE
     Indication: TETANUS
     Dosage: 0.30MG/DAY
     Route: 050
  9. METRONIDAZOLE. [Concomitant]
     Active Substance: METRONIDAZOLE
     Dosage: 500 MG, UNK
     Route: 042

REACTIONS (3)
  - Off label use [Recovered/Resolved]
  - Myalgia [Recovered/Resolved]
  - Drug ineffective [Unknown]
